FAERS Safety Report 7957626-8 (Version None)
Quarter: 2011Q4

REPORT INFORMATION
  Report Type: 
  Country: None (occurrence: None)
  Receive Date: 20111205
  Receipt Date: 20111125
  Transmission Date: 20120403
  Serious: Yes (Hospitalization)
  Sender: FDA-Public Use
  Company Number: PHHY2011PH103577

PATIENT
  Age: 32 Year
  Sex: Male

DRUGS (2)
  1. BACLOFEN [Concomitant]
     Dosage: 10 MG, UNK
  2. TEGRETOL [Suspect]
     Indication: CLUSTER HEADACHE
     Dosage: 0.5 DF, QD

REACTIONS (2)
  - ORAL DISORDER [None]
  - STEVENS-JOHNSON SYNDROME [None]
